FAERS Safety Report 6719085-2 (Version None)
Quarter: 2010Q2

REPORT INFORMATION
  Report Type: 
  Country: None (occurrence: None)
  Receive Date: 20100511
  Receipt Date: 20100427
  Transmission Date: 20101027
  Serious: Yes (Hospitalization)
  Sender: FDA-Public Use
  Company Number: FR-TYCO HEALTHCARE/MALLINCKRODT-T201001111

PATIENT
  Age: 44 Year
  Sex: Male

DRUGS (2)
  1. NALTREXONE HYDROCHLORIDE [Suspect]
     Indication: ALCOHOL USE
     Dosage: 50 MG, QD
  2. METHADOSE [Interacting]
     Indication: SUBSTANCE ABUSE
     Dosage: 120 MG, QD

REACTIONS (8)
  - AGITATION [None]
  - AKINESIA [None]
  - DRUG WITHDRAWAL SYNDROME [None]
  - HALLUCINATION [None]
  - HYPERTENSION [None]
  - PYREXIA [None]
  - STRESS CARDIOMYOPATHY [None]
  - TACHYCARDIA [None]
